FAERS Safety Report 10943850 (Version 1)
Quarter: 2015Q1

REPORT INFORMATION
  Report Type: Spontaneous
  Country: US (occurrence: None)
  Receive Date: 20150212
  Receipt Date: 20150212
  Transmission Date: 20150721
  Serious: No
  Sender: FDA-Public Use
  Company Number: TPA2011A07840

PATIENT
  Age: 53 Year
  Sex: Female
  Weight: 90.72 kg

DRUGS (10)
  1. BUMETANIDE. [Concomitant]
     Active Substance: BUMETANIDE
  2. ULORIC [Suspect]
     Active Substance: FEBUXOSTAT
     Indication: GOUT
     Route: 048
     Dates: start: 201107
  3. PREDNISONE. [Concomitant]
     Active Substance: PREDNISONE
  4. MAGNESIUM [Concomitant]
     Active Substance: MAGNESIUM
  5. POTASSIUM [Concomitant]
     Active Substance: POTASSIUM
  6. SIMVASTATIN. [Concomitant]
     Active Substance: SIMVASTATIN
  7. GENGRAF (CICLOSPORIN) [Concomitant]
  8. AMLODIPINE [Concomitant]
     Active Substance: AMLODIPINE BESYLATE
  9. METOPROLOL [Concomitant]
     Active Substance: METOPROLOL
  10. LEVOXYL (LEVOTHYROXINE SODIUM) [Concomitant]

REACTIONS (1)
  - Pain in extremity [None]

NARRATIVE: CASE EVENT DATE: 20111115
